FAERS Safety Report 4636497-1 (Version None)
Quarter: 2005Q2

REPORT INFORMATION
  Report Type: 
  Country: None (occurrence: None)
  Receive Date: 20050415
  Receipt Date: 20050404
  Transmission Date: 20051028
  Serious: Yes (Hospitalization)
  Sender: FDA-Public Use
  Company Number: US-BRISTOL-MYERS SQUIBB COMPANY-12920682

PATIENT
  Age: 79 Year
  Sex: Female
  Weight: 63 kg

DRUGS (4)
  1. COUMADIN [Suspect]
     Indication: ATRIAL FIBRILLATION
     Dosage: 3 MG ALTERNATING WITH 3.5 MG EVERY OTHER DAY
  2. VITAMIN K [Concomitant]
  3. LOPRESSOR [Concomitant]
     Dosage: 1/2 TABLET IN THE MORNING AND 1/2 TABLET IN THE EVENING IF NEEDED
  4. XALATAN [Concomitant]
     Route: 047

REACTIONS (3)
  - INTERNATIONAL NORMALISED RATIO FLUCTUATION [None]
  - NERVOUSNESS [None]
  - PNEUMONIA [None]
